FAERS Safety Report 18311802 (Version 5)
Quarter: 2021Q3

REPORT INFORMATION
  Report Type: Other
  Country: AU (occurrence: AU)
  Receive Date: 20200925
  Receipt Date: 20210923
  Transmission Date: 20211014
  Serious: Yes (Death, Hospitalization, Other)
  Sender: FDA-Public Use
  Company Number: AU-TOLMAR, INC.-20AU022911

PATIENT
  Age: 75 Year
  Sex: Male

DRUGS (1)
  1. ELIGARD [Suspect]
     Active Substance: LEUPROLIDE ACETATE
     Indication: PROSTATE CANCER
     Dosage: 22.5 MG, Q 3 MONTH
     Route: 058
     Dates: start: 20180831

REACTIONS (9)
  - Prostate cancer [Not Recovered/Not Resolved]
  - Dysphonia [Unknown]
  - Fall [Unknown]
  - Cerebrovascular accident [Not Recovered/Not Resolved]
  - Dysphagia [Recovering/Resolving]
  - Skin laceration [Unknown]
  - Death [Fatal]
  - Speech disorder [Recovering/Resolving]
  - Chest pain [Unknown]

NARRATIVE: CASE EVENT DATE: 202010
